FAERS Safety Report 7470790-2 (Version None)
Quarter: 2011Q2

REPORT INFORMATION
  Report Type: 
  Country: None (occurrence: None)
  Receive Date: 20110510
  Receipt Date: 20110404
  Transmission Date: 20111010
  Serious: No
  Sender: FDA-Public Use
  Company Number: US-BAYER-2011-030451

PATIENT
  Age: 88 Year
  Sex: Female

DRUGS (1)
  1. ALEVE (CAPLET) [Suspect]
     Indication: PAIN
     Dosage: 220 MG, QD
     Route: 048
     Dates: start: 20101001

REACTIONS (1)
  - NO ADVERSE EVENT [None]
